FAERS Safety Report 5860709-X (Version None)
Quarter: 2008Q3

REPORT INFORMATION
  Report Type: 
  Country: None (occurrence: None)
  Receive Date: 20080827
  Receipt Date: 20071025
  Transmission Date: 20090109
  Serious: No
  Sender: FDA-Public Use
  Company Number: US-ABBOTT-07P-163-0422116-00

PATIENT
  Sex: Female
  Weight: 93 kg

DRUGS (2)
  1. NIASPAN [Suspect]
     Indication: BLOOD CHOLESTEROL INCREASED
     Route: 048
     Dates: start: 20071025
  2. IMMOPREN [Concomitant]
     Indication: ARRHYTHMIA

REACTIONS (1)
  - BURNING SENSATION [None]
